FAERS Safety Report 4714797-4 (Version None)
Quarter: 2005Q3

REPORT INFORMATION
  Report Type: 
  Country: None (occurrence: None)
  Receive Date: 20050713
  Receipt Date: 20050630
  Transmission Date: 20060218
  Serious: Yes (Hospitalization)
  Sender: FDA-Public Use
  Company Number: 2005PV000187

PATIENT
  Age: 38 Year
  Sex: Female
  Weight: 51.7101 kg

DRUGS (9)
  1. BYETTA [Suspect]
     Indication: DIABETES MELLITUS NON-INSULIN-DEPENDENT
     Dosage: 5 UG; BID; SC
     Route: 058
     Dates: start: 20050615, end: 20050618
  2. METFORMIN HCL [Concomitant]
  3. GLUCOPHAGE [Concomitant]
  4. GLUCOPHAGE [Concomitant]
  5. HUMULIN 70/30 [Concomitant]
  6. HUMULIN 70/30 [Concomitant]
  7. NOVOLIN 70/30 [Concomitant]
  8. NOVOLIN 70/30 [Concomitant]
  9. BLOOD PRESSURE PILL [Concomitant]

REACTIONS (13)
  - BODY TEMPERATURE DECREASED [None]
  - DEHYDRATION [None]
  - HEART RATE INCREASED [None]
  - HYPERKALAEMIA [None]
  - HYPOKALAEMIA [None]
  - HYPONATRAEMIA [None]
  - HYPOVOLAEMIA [None]
  - KETOACIDOSIS [None]
  - METABOLIC ACIDOSIS [None]
  - NAUSEA [None]
  - RESPIRATORY ALKALOSIS [None]
  - RESPIRATORY RATE INCREASED [None]
  - VOMITING [None]
